FAERS Safety Report 13856803 (Version 1)
Quarter: 2017Q3

REPORT INFORMATION
  Report Type: Spontaneous
  Country: US (occurrence: US)
  Receive Date: 20170810
  Receipt Date: 20170810
  Transmission Date: 20171127
  Serious: No
  Sender: FDA-Public Use
  Company Number: US-ROCHE-1415874

PATIENT
  Age: 67 Year
  Sex: Female

DRUGS (2)
  1. TAMIFLU [Suspect]
     Active Substance: OSELTAMIVIR PHOSPHATE
     Indication: INFLUENZA
     Route: 065
     Dates: start: 20140604, end: 20140604
  2. BABY ASPIRIN [Concomitant]
     Active Substance: ASPIRIN
     Dosage: IN THE EVENING
     Route: 065

REACTIONS (8)
  - Dyspnoea [Recovering/Resolving]
  - Tongue disorder [Recovering/Resolving]
  - Hyperhidrosis [Recovering/Resolving]
  - Confusional state [Recovering/Resolving]
  - Throat irritation [Recovering/Resolving]
  - Body temperature increased [Recovering/Resolving]
  - Oropharyngeal pain [Recovering/Resolving]
  - Inflammation [Recovering/Resolving]

NARRATIVE: CASE EVENT DATE: 20140604
